FAERS Safety Report 4600197-4 (Version None)
Quarter: 2005Q1

REPORT INFORMATION
  Report Type: 
  Country: None (occurrence: None)
  Receive Date: 20050303
  Receipt Date: 20050211
  Transmission Date: 20050727
  Serious: Yes (Hospitalization)
  Sender: FDA-Public Use
  Company Number: FR_050105646

PATIENT
  Age: 60 Year
  Sex: Female

DRUGS (2)
  1. EVISTA [Suspect]
     Indication: OSTEOPOROSIS
     Dosage: 60 MG DAY
     Dates: start: 20041201, end: 20041230
  2. ZOCOR (SIMVASTATIN RATIOPHARM) [Concomitant]

REACTIONS (4)
  - APHASIA [None]
  - FORMICATION [None]
  - SENSORIMOTOR DISORDER [None]
  - TRANSIENT ISCHAEMIC ATTACK [None]
